FAERS Safety Report 9053508 (Version 1)
Quarter: 2013Q1

REPORT INFORMATION
  Report Type: Spontaneous
  Country: FR (occurrence: FR)
  Receive Date: 20130208
  Receipt Date: 20130208
  Transmission Date: 20140127
  Serious: Yes (Hospitalization, Other)
  Sender: FDA-Public Use
  Company Number: PHHY2010FR70552

PATIENT
  Age: 74 Year
  Sex: Male

DRUGS (3)
  1. TASIGNA [Suspect]
     Indication: CHRONIC MYELOID LEUKAEMIA
     Dosage: 800 MG, DAILY
     Route: 048
     Dates: start: 20081017, end: 20081105
  2. TASIGNA [Suspect]
     Dosage: 400 MG, DAILY
     Route: 048
     Dates: start: 20081223, end: 20121221
  3. TERALITHE [Concomitant]
     Indication: BIPOLAR I DISORDER
     Dosage: UNK UKN, UNK
     Dates: start: 1974

REACTIONS (8)
  - Arterial stenosis [Recovered/Resolved with Sequelae]
  - Myocardial ischaemia [Recovered/Resolved with Sequelae]
  - Atrial fibrillation [Unknown]
  - Tachycardia [Unknown]
  - Hypercholesterolaemia [Unknown]
  - Peripheral arterial occlusive disease [Recovered/Resolved with Sequelae]
  - Dysphonia [Not Recovered/Not Resolved]
  - Neuropathy peripheral [Not Recovered/Not Resolved]
